FAERS Safety Report 12600225 (Version 1)
Quarter: 2016Q3

REPORT INFORMATION
  Report Type: Spontaneous
  Country: US (occurrence: US)
  Receive Date: 20160727
  Receipt Date: 20160727
  Transmission Date: 20161109
  Serious: No
  Sender: FDA-Public Use
  Company Number: US-ENDO PHARMACEUTICALS INC.-2015-002516

PATIENT
  Age: 60 Year
  Sex: Female
  Weight: 60.84 kg

DRUGS (3)
  1. PROMETHAZINE HYDROCHLORIDE TABLETS 25MG [Suspect]
     Active Substance: PROMETHAZINE HYDROCHLORIDE
     Indication: NAUSEA
     Route: 048
     Dates: start: 2014
  2. PROMETHAZINE HYDROCHLORIDE TABLETS 25MG [Suspect]
     Active Substance: PROMETHAZINE HYDROCHLORIDE
     Indication: VOMITING
  3. OXYCODONE HYDROCHLORIDE. [Concomitant]
     Active Substance: OXYCODONE HYDROCHLORIDE
     Indication: PAIN

REACTIONS (4)
  - Hyperhidrosis [Not Recovered/Not Resolved]
  - Drug ineffective [Not Recovered/Not Resolved]
  - Pain [Recovered/Resolved]
  - Constipation [Not Recovered/Not Resolved]

NARRATIVE: CASE EVENT DATE: 20150818
